FAERS Safety Report 4864922-X (Version None)
Quarter: 2005Q4

REPORT INFORMATION
  Report Type: 
  Country: None (occurrence: None)
  Receive Date: 20051201
  Receipt Date: 20050801
  Transmission Date: 20060501
  Serious: No
  Sender: FDA-Public Use
  Company Number: 2005PV000718

PATIENT
  Age: 70 Year
  Sex: Female
  Weight: 63.5036 kg

DRUGS (7)
  1. BYETTA [Suspect]
     Indication: DIABETES MELLITUS NON-INSULIN-DEPENDENT
     Dosage: 5 MCG; BID; SC
     Route: 058
     Dates: start: 20050718
  2. MONOPRIL-HCT [Concomitant]
  3. ESTRADIOL INJ [Concomitant]
  4. ZETIA [Concomitant]
  5. ALTOPREV [Concomitant]
  6. ZOLOFT [Concomitant]
  7. METFORMIN/GLIPIZIDE [Concomitant]

REACTIONS (1)
  - INJECTION SITE HAEMORRHAGE [None]
